FAERS Safety Report 18397948 (Version 1)
Quarter: 2020Q4

REPORT INFORMATION
  Report Type: Report from Study
  Country: IL (occurrence: IL)
  Receive Date: 20201019
  Receipt Date: 20201019
  Transmission Date: 20210114
  Serious: No
  Sender: FDA-Public Use
  Company Number: IL-JNJFOC-20201003116

PATIENT
  Age: 44 Year
  Sex: Female

DRUGS (2)
  1. STELARA [Suspect]
     Active Substance: USTEKINUMAB
  2. STELARA [Suspect]
     Active Substance: USTEKINUMAB
     Indication: PSORIASIS
     Dosage: 90 MG/ML
     Route: 058

REACTIONS (2)
  - Syringe issue [Unknown]
  - Underdose [Unknown]

NARRATIVE: CASE EVENT DATE: 20200924
